FAERS Safety Report 20932577 (Version 1)
Quarter: 2022Q2

REPORT INFORMATION
  Report Type: Spontaneous
  Country: MX (occurrence: MX)
  Receive Date: 20220608
  Receipt Date: 20220608
  Transmission Date: 20220720
  Serious: Yes (Death)
  Sender: FDA-Public Use
  Company Number: MX-PFIZER INC-202200809744

PATIENT
  Age: 63 Year
  Sex: Male

DRUGS (1)
  1. LORBRENA [Suspect]
     Active Substance: LORLATINIB
     Indication: Non-small cell lung cancer
     Dosage: UNK
     Dates: start: 202204

REACTIONS (1)
  - Hyperkalaemia [Fatal]

NARRATIVE: CASE EVENT DATE: 20220101
